FAERS Safety Report 5148083-8 (Version None)
Quarter: 2006Q4

REPORT INFORMATION
  Report Type: 
  Country: None (occurrence: None)
  Receive Date: 20061110
  Receipt Date: 20061031
  Transmission Date: 20070319
  Serious: Yes (Other)
  Sender: FDA-Public Use
  Company Number: PHBS2006SG17342

PATIENT
  Age: 55 Year
  Sex: Female

DRUGS (5)
  1. PREDNISOLONE [Suspect]
     Indication: RENAL TRANSPLANT
     Dosage: 8 MG, QD
  2. PREDNISOLONE [Suspect]
     Dosage: 7 MG, QD
  3. MYCOPHENOLATE MOFETIL [Suspect]
     Indication: RENAL TRANSPLANT
     Dosage: 500 MG, BID
  4. CYCLOSPORINE [Suspect]
     Indication: RENAL TRANSPLANT
     Dosage: 75 MG, BID
  5. CYCLOSPORINE [Suspect]
     Dosage: 60 MG, BID
     Dates: end: 20040401

REACTIONS (4)
  - EPSTEIN-BARR VIRUS INFECTION [None]
  - HEPATIC NEOPLASM [None]
  - SMOOTH MUSCLE CELL NEOPLASM [None]
  - VASCULAR GRAFT COMPLICATION [None]
